FAERS Safety Report 6656732-8 (Version None)
Quarter: 2010Q1

REPORT INFORMATION
  Report Type: 
  Country: None (occurrence: None)
  Receive Date: 20100329
  Receipt Date: 20090212
  Transmission Date: 20100710
  Serious: No
  Sender: FDA-Public Use
  Company Number: US-BAUSCH-2009BL000633

PATIENT
  Age: 85 Year
  Sex: Male

DRUGS (7)
  1. POLYMYXIN B SULFATES AND TRIMETHOPRIM SULFATE [Suspect]
     Indication: CONJUNCTIVITIS
     Route: 047
     Dates: start: 20080101
  2. POLYMYXIN B SULFATES AND TRIMETHOPRIM SULFATE [Suspect]
     Indication: EYE INFECTION STAPHYLOCOCCAL
     Route: 047
     Dates: start: 20080101
  3. SULFACETAMIDE SODIUM [Suspect]
     Indication: CONJUNCTIVITIS
     Route: 047
     Dates: start: 20080101
  4. SULFACETAMIDE SODIUM [Suspect]
     Indication: EYE INFECTION STAPHYLOCOCCAL
     Route: 047
     Dates: start: 20080101
  5. COUMADIN [Concomitant]
  6. VANCOMYCIN [Concomitant]
     Indication: NOSOCOMIAL INFECTION
  7. CIPROFLOXACIN [Concomitant]
     Indication: CYSTITIS

REACTIONS (2)
  - DRUG INEFFECTIVE [None]
  - EYE INFECTION STAPHYLOCOCCAL [None]
